FAERS Safety Report 7241742-2 (Version None)
Quarter: 2011Q1

REPORT INFORMATION
  Report Type: 
  Country: None (occurrence: None)
  Receive Date: 20110124
  Receipt Date: 20110118
  Transmission Date: 20110831
  Serious: Yes (Other)
  Sender: FDA-Public Use
  Company Number: CA-ABBOTT-11P-028-0699350-00

PATIENT
  Sex: Female

DRUGS (1)
  1. HUMIRA [Suspect]
     Indication: CROHN'S DISEASE
     Route: 058
     Dates: start: 20090724

REACTIONS (7)
  - PARALYSIS [None]
  - STAPHYLOCOCCAL INFECTION [None]
  - ILL-DEFINED DISORDER [None]
  - PERINEAL ABSCESS [None]
  - CEREBROVASCULAR DISORDER [None]
  - AMNESIA [None]
  - RESPIRATORY ARREST [None]
